FAERS Safety Report 15023202 (Version 4)
Quarter: 2019Q1

REPORT INFORMATION
  Report Type: Spontaneous
  Country: CO (occurrence: CO)
  Receive Date: 20180618
  Receipt Date: 20190205
  Transmission Date: 20190417
  Serious: Yes (Other)
  Sender: FDA-Public Use
  Company Number: CO-PFIZER INC-2018242962

PATIENT
  Age: 6 Year
  Sex: Female

DRUGS (3)
  1. GENOTROPIN [Suspect]
     Active Substance: SOMATROPIN
     Indication: CRANIOPHARYNGIOMA
     Dosage: UNK MG, UNK
     Dates: start: 201805
  2. GENOTROPIN [Suspect]
     Active Substance: SOMATROPIN
     Indication: HYPOTHYROIDISM
  3. GENOTROPIN [Suspect]
     Active Substance: SOMATROPIN
     Indication: GROWTH RETARDATION

REACTIONS (5)
  - Meningitis [Unknown]
  - Product use in unapproved indication [Unknown]
  - Neoplasm recurrence [Unknown]
  - Headache [Unknown]
  - Brain neoplasm [Unknown]

NARRATIVE: CASE EVENT DATE: 201805
